FAERS Safety Report 7106303-4 (Version None)
Quarter: 2010Q4

REPORT INFORMATION
  Report Type: 
  Country: None (occurrence: None)
  Receive Date: 20101116
  Receipt Date: 20101105
  Transmission Date: 20110411
  Serious: Yes (Hospitalization)
  Sender: FDA-Public Use
  Company Number: JP-JNJFOC-20101004757

PATIENT
  Age: 12 Year
  Sex: Male
  Weight: 40.95 kg

DRUGS (19)
  1. REMICADE [Suspect]
     Indication: CROHN'S DISEASE
     Route: 042
  2. REMICADE [Suspect]
     Route: 042
  3. REMICADE [Suspect]
     Route: 042
  4. REMICADE [Suspect]
     Route: 042
  5. REMICADE [Suspect]
     Route: 042
  6. REMICADE [Suspect]
     Route: 042
  7. REMICADE [Suspect]
     Route: 042
  8. REMICADE [Suspect]
     Route: 042
  9. REMICADE [Suspect]
     Route: 042
  10. FERROUS CITRATE [Concomitant]
     Indication: IRON DEFICIENCY ANAEMIA
     Route: 048
  11. MESALAMINE [Concomitant]
     Indication: CROHN'S DISEASE
  12. PREDNISOLONE [Concomitant]
     Indication: CROHN'S DISEASE
  13. AZATHIOPRINE [Concomitant]
     Indication: CROHN'S DISEASE
  14. TPN [Concomitant]
  15. TACROLIMUS [Concomitant]
     Indication: CROHN'S DISEASE
  16. SALAZOPYRIN [Concomitant]
     Indication: CROHN'S DISEASE
     Route: 048
  17. PROGRAF [Concomitant]
     Indication: CROHN'S DISEASE
     Route: 048
  18. BIOFERMIN [Concomitant]
     Indication: CROHN'S DISEASE
  19. TAKEPRON [Concomitant]
     Indication: CROHN'S DISEASE
     Route: 048

REACTIONS (4)
  - CROHN'S DISEASE [None]
  - DIARRHOEA [None]
  - PYREXIA [None]
  - VOMITING [None]
